FAERS Safety Report 19681359 (Version 1)
Quarter: 2021Q3

REPORT INFORMATION
  Report Type: Spontaneous
  Country: US (occurrence: US)
  Receive Date: 20210810
  Receipt Date: 20210810
  Transmission Date: 20211014
  Serious: No
  Sender: FDA-Public Use
  Company Number: US-IGSA-BIG0013674

PATIENT
  Sex: Female

DRUGS (17)
  1. GAMUNEX?C [Suspect]
     Active Substance: HUMAN IMMUNOGLOBULIN G
     Indication: MENINGITIS ASEPTIC
     Dosage: 180 GRAM, Q.4WK.
     Route: 042
  2. VENTOLIN HFA [Concomitant]
     Active Substance: ALBUTEROL SULFATE
  3. BACLOFEN. [Concomitant]
     Active Substance: BACLOFEN
  4. DOXYCYCLINE HYCLATE. [Concomitant]
     Active Substance: DOXYCYCLINE HYCLATE
  5. OLMESARTAN MEDOXOMIL. [Concomitant]
     Active Substance: OLMESARTAN MEDOXOMIL
  6. TORSEMIDE. [Concomitant]
     Active Substance: TORSEMIDE
  7. ACETAMINOPHEN. [Concomitant]
     Active Substance: ACETAMINOPHEN
  8. ALLEGRA ALLERGY [Concomitant]
     Active Substance: FEXOFENADINE HYDROCHLORIDE
  9. WARFARIN SODIUM. [Concomitant]
     Active Substance: WARFARIN SODIUM
  10. GAMUNEX?C [Suspect]
     Active Substance: HUMAN IMMUNOGLOBULIN G
     Indication: LEPTOSPIROSIS
  11. PREDNISONE. [Concomitant]
     Active Substance: PREDNISONE
  12. LANTUS [Concomitant]
     Active Substance: INSULIN GLARGINE
  13. CEFEPIME HCL [Concomitant]
     Active Substance: CEFEPIME HYDROCHLORIDE
  14. DIFLUCAN [Concomitant]
     Active Substance: FLUCONAZOLE
  15. NOVOLOG [Concomitant]
     Active Substance: INSULIN ASPART
  16. OXYCODONE HYDROCHLORIDE. [Concomitant]
     Active Substance: OXYCODONE HYDROCHLORIDE
  17. TRELEGY ELLIPTA [Concomitant]
     Active Substance: FLUTICASONE FUROATE\UMECLIDINIUM BROMIDE\VILANTEROL TRIFENATATE

REACTIONS (2)
  - Ascites [Not Recovered/Not Resolved]
  - Discharge [Not Recovered/Not Resolved]
